FAERS Safety Report 5505564-2 (Version None)
Quarter: 2007Q4

REPORT INFORMATION
  Report Type: 
  Country: None (occurrence: None)
  Receive Date: 20071102
  Receipt Date: 20071024
  Transmission Date: 20080405
  Serious: Yes (Death, Congenital Anomaly, Other)
  Sender: FDA-Public Use
  Company Number: US-PFIZER INC-2007069586

PATIENT

DRUGS (2)
  1. ZOLOFT [Suspect]
     Route: 048
  2. NORTRIPTYLINE HCL [Suspect]
     Indication: DEPRESSION

REACTIONS (2)
  - CONGENITAL TRICUSPID VALVE ATRESIA [None]
  - DRUG EXPOSURE DURING PREGNANCY [None]
